FAERS Safety Report 5728553-1 (Version None)
Quarter: 2008Q2

REPORT INFORMATION
  Report Type: 
  Country: None (occurrence: None)
  Receive Date: 20080506
  Receipt Date: 20080425
  Transmission Date: 20081010
  Serious: Yes (Hospitalization, Other)
  Sender: FDA-Public Use
  Company Number: US-AMGEN-QUU276571

PATIENT
  Sex: Male

DRUGS (1)
  1. ENBREL [Suspect]
     Indication: PSORIASIS
     Route: 058
     Dates: start: 20050425

REACTIONS (4)
  - BLOOD PRESSURE ABNORMAL [None]
  - HEART VALVE REPLACEMENT [None]
  - PSORIASIS [None]
  - VASCULAR GRAFT [None]
